APPROVED DRUG PRODUCT: CEFOTAXIME SODIUM
Active Ingredient: CEFOTAXIME SODIUM
Strength: EQ 500MG BASE/VIAL
Dosage Form/Route: INJECTABLE;INJECTION
Application: A065517 | Product #001
Applicant: AUROBINDO PHARMA LTD
Approved: Nov 6, 2009 | RLD: No | RS: No | Type: DISCN